FAERS Safety Report 18975087 (Version 2)
Quarter: 2021Q1

REPORT INFORMATION
  Report Type: Spontaneous
  Country: US (occurrence: US)
  Receive Date: 20210306
  Receipt Date: 20210310
  Transmission Date: 20210420
  Serious: Yes (Other)
  Sender: FDA-Public Use
  Company Number: US-TEVA-2021-US-1886401

PATIENT
  Sex: Female

DRUGS (5)
  1. ESTRADIOL. [Interacting]
     Active Substance: ESTRADIOL
     Route: 065
  2. ESTRADIOL. [Suspect]
     Active Substance: ESTRADIOL
     Route: 065
  3. ESTRADIOL. [Suspect]
     Active Substance: ESTRADIOL
     Route: 065
  4. NEFAZODONE HYDROCHLORIDE TEVA [Suspect]
     Active Substance: NEFAZODONE HYDROCHLORIDE
     Route: 065
  5. ZOLOFT [Concomitant]
     Active Substance: SERTRALINE HYDROCHLORIDE
     Route: 065

REACTIONS (9)
  - Drug interaction [Unknown]
  - Hysterectomy [Unknown]
  - Feeling abnormal [Not Recovered/Not Resolved]
  - Impaired work ability [Not Recovered/Not Resolved]
  - Drug ineffective [Unknown]
  - Product supply issue [Unknown]
  - Withdrawal syndrome [Unknown]
  - Suicidal ideation [Unknown]
  - Blood oestrogen abnormal [Not Recovered/Not Resolved]
